FAERS Safety Report 10585232 (Version 1)
Quarter: 2014Q4

REPORT INFORMATION
  Report Type: Spontaneous
  Country: JP (occurrence: None)
  Receive Date: 20141113
  Receipt Date: 20141113
  Transmission Date: 20150529
  Serious: Yes (Other)
  Sender: FDA-Public Use
  Company Number: 2014MPI01169

PATIENT
  Age: 81 Year
  Sex: Female
  Weight: 51.8 kg

DRUGS (2)
  1. ADCETRIS [Suspect]
     Active Substance: BRENTUXIMAB VEDOTIN
     Indication: ANAPLASTIC LARGE-CELL LYMPHOMA
     Route: 041
     Dates: start: 20140606, end: 20140808
  2. CRAVIT (LEVOFLOXACIN) [Concomitant]

REACTIONS (3)
  - White blood cell count decreased [None]
  - Alopecia [None]
  - Neutropenia [None]

NARRATIVE: CASE EVENT DATE: 20140611
